FAERS Safety Report 23687703 (Version 1)
Quarter: 2024Q1

REPORT INFORMATION
  Report Type: Spontaneous
  Country: IT (occurrence: IT)
  Receive Date: 20240329
  Receipt Date: 20240329
  Transmission Date: 20240409
  Serious: Yes (Other)
  Sender: FDA-Public Use
  Company Number: None

PATIENT
  Age: 43 Year
  Sex: Female

DRUGS (3)
  1. EPIRUBICIN HYDROCHLORIDE [Suspect]
     Active Substance: EPIRUBICIN HYDROCHLORIDE
     Dosage: 150 MG
     Route: 042
     Dates: start: 20240215, end: 20240312
  2. CYCLOPHOSPHAMIDE [Suspect]
     Active Substance: CYCLOPHOSPHAMIDE
     Dosage: 1002 MG
     Route: 042
     Dates: start: 20240215, end: 20240312
  3. KEYTRUDA [Suspect]
     Active Substance: PEMBROLIZUMAB
     Dosage: 200 MG
     Route: 042
     Dates: start: 20240215, end: 20240312

REACTIONS (3)
  - Hypothyroidism [Recovering/Resolving]
  - Blood creatinine increased [Recovering/Resolving]
  - Haemoglobin increased [Recovering/Resolving]

NARRATIVE: CASE EVENT DATE: 20240215
